FAERS Safety Report 6536457-X (Version None)
Quarter: 2010Q1

REPORT INFORMATION
  Report Type: 
  Country: None (occurrence: None)
  Receive Date: 20100113
  Receipt Date: 20100108
  Transmission Date: 20100710
  Serious: Yes (Disabling)
  Sender: FDA-Public Use
  Company Number: NO-MERCK-1001NOR00001

PATIENT
  Age: 60 Year
  Sex: Female

DRUGS (5)
  1. ZOCOR [Suspect]
     Indication: HYPERCHOLESTEROLAEMIA
     Route: 048
     Dates: start: 20070801, end: 20090801
  2. TRAMADOL HYDROCHLORIDE [Concomitant]
     Indication: PAIN
     Route: 048
  3. PANTOPRAZOLE SODIUM [Concomitant]
     Route: 048
  4. EBASTINE [Concomitant]
     Indication: SEASONAL ALLERGY
     Route: 048
  5. SOTALOL HYDROCHLORIDE [Concomitant]
     Indication: ATRIAL FIBRILLATION
     Route: 048

REACTIONS (5)
  - ARTHRALGIA [None]
  - DEPRESSION [None]
  - HYPERSOMNIA [None]
  - MEMORY IMPAIRMENT [None]
  - MYALGIA [None]
